FAERS Safety Report 7376915-1 (Version None)
Quarter: 2011Q1

REPORT INFORMATION
  Report Type: 
  Country: None (occurrence: None)
  Receive Date: 20110327
  Receipt Date: 20110314
  Transmission Date: 20110831
  Serious: Yes (Death, Other)
  Sender: FDA-Public Use
  Company Number: US-BAYER-200915559NA

PATIENT
  Sex: Male
  Weight: 77.273 kg

DRUGS (64)
  1. MAGNEVIST [Suspect]
     Route: 042
     Dates: start: 20060505, end: 20060505
  2. SUNITINIB MALATE [Concomitant]
     Indication: NEOPLASM MALIGNANT
  3. PROTONIX [Concomitant]
  4. PEPCID [Concomitant]
  5. MAGNEVIST [Suspect]
     Indication: NUCLEAR MAGNETIC RESONANCE IMAGING
     Route: 042
     Dates: start: 20041230, end: 20041230
  6. MAGNEVIST [Suspect]
     Route: 042
     Dates: start: 20050310, end: 20050310
  7. MAGNEVIST [Suspect]
     Route: 042
     Dates: start: 20070320, end: 20070320
  8. MAGNEVIST [Suspect]
     Dates: start: 20080418, end: 20080418
  9. KEPPRA [Concomitant]
     Indication: CONVULSION PROPHYLAXIS
     Route: 048
  10. ASPIRIN [Concomitant]
  11. VICODIN [Concomitant]
  12. MAGNEVIST [Suspect]
     Route: 042
     Dates: start: 20050311, end: 20050311
  13. MAGNEVIST [Suspect]
     Route: 042
     Dates: start: 20050404, end: 20050404
  14. MAGNEVIST [Suspect]
     Dates: start: 20070615, end: 20070615
  15. MAGNEVIST [Suspect]
     Dates: start: 20080423, end: 20080423
  16. ANALGESICS [Concomitant]
     Indication: PAIN
  17. CAPECITABINE [Concomitant]
  18. TEQUIN [Concomitant]
  19. DECADRON [Concomitant]
  20. MAGNEVIST [Suspect]
     Dosage: REPORTED AS ^MAG^
     Dates: start: 20050624, end: 20050624
  21. MAGNEVIST [Suspect]
     Route: 042
     Dates: start: 20050928, end: 20050928
  22. MAGNEVIST [Suspect]
     Route: 042
     Dates: start: 20051116, end: 20051116
  23. MAGNEVIST [Suspect]
     Route: 042
     Dates: start: 20060209, end: 20060209
  24. MAGNEVIST [Suspect]
     Route: 042
     Dates: start: 20070508, end: 20070508
  25. INTERFERON [Concomitant]
     Indication: NEOPLASM
     Dates: start: 20050101, end: 20060101
  26. MIRALAX [Concomitant]
     Indication: CONSTIPATION
  27. PLAVIX [Concomitant]
  28. AMBIEN [Concomitant]
  29. MAGNEVIST [Suspect]
     Indication: ANGIOGRAM
     Route: 042
     Dates: start: 20041231, end: 20041231
  30. MAGNEVIST [Suspect]
     Route: 042
     Dates: start: 20060808, end: 20060808
  31. MAGNEVIST [Suspect]
     Route: 042
     Dates: start: 20061115, end: 20061115
  32. MAGNEVIST [Suspect]
     Route: 042
     Dates: start: 20080219, end: 20080219
  33. MAGNEVIST [Suspect]
     Route: 042
     Dates: start: 20080220, end: 20080220
  34. MULTIHANCE [Suspect]
     Indication: NEOPLASM
     Dosage: MEDICAL RECORD LISTS MULTIHANCE AND PLAINTIFF FACT SHEET LISTS MAGNEVIST FOR THIS DATE
     Dates: start: 20070731, end: 20070731
  35. NEXAVAR [Concomitant]
     Indication: NEOPLASM MALIGNANT
     Dates: start: 20060101, end: 20070101
  36. SENOKOT [Concomitant]
  37. MORPHINE [Concomitant]
  38. MAGNEVIST [Suspect]
     Dosage: 16 ML, UNK
     Dates: start: 20050517, end: 20050517
  39. MAGNEVIST [Suspect]
     Route: 042
     Dates: start: 20050823, end: 20050823
  40. MAGNEVIST [Suspect]
     Route: 042
     Dates: start: 20051115, end: 20051115
  41. MAGNEVIST [Suspect]
     Route: 042
     Dates: start: 20060504, end: 20060504
  42. MAGNEVIST [Suspect]
     Route: 042
     Dates: start: 20061114, end: 20061114
  43. MAGNEVIST [Suspect]
     Route: 042
     Dates: start: 20070509, end: 20070509
  44. MAGNEVIST [Suspect]
     Dosage: NOTE FROM MEDICAL RECORDS CONTRADICTS PLAINTIFF FACT SHEET AND LIST MULTIHANCE AS CONTRAST AGENT
     Route: 042
     Dates: start: 20070731, end: 20070731
  45. MAGNEVIST [Suspect]
     Route: 042
     Dates: start: 20070801, end: 20070801
  46. MAGNEVIST [Suspect]
     Dosage: REPORTED AS ^MAG^
     Route: 042
     Dates: start: 20070904, end: 20070904
  47. OMNISCAN [Suspect]
     Indication: NUCLEAR MAGNETIC RESONANCE IMAGING
     Dates: start: 20041220, end: 20041220
  48. TEMSIROLIMUS [Suspect]
     Indication: NEOPLASM
     Dosage: UNK
     Dates: start: 20070801, end: 20080101
  49. COLACE [Concomitant]
  50. AVASTIN [Concomitant]
  51. MAGNEVIST [Suspect]
     Indication: NUCLEAR MAGNETIC RESONANCE IMAGING BRAIN
     Route: 042
     Dates: start: 20050207, end: 20050207
  52. MAGNEVIST [Suspect]
     Route: 042
     Dates: start: 20050627, end: 20050627
  53. MAGNEVIST [Suspect]
     Route: 042
     Dates: start: 20060208, end: 20060208
  54. OMNISCAN [Suspect]
     Indication: ANGIOGRAM
     Dosage: 17 ML, ONCE
     Dates: start: 20060809, end: 20060809
  55. GEMCITABINE [Concomitant]
  56. ATIVAN [Concomitant]
     Indication: ANXIETY
  57. MAGNEVIST [Suspect]
     Route: 042
     Dates: start: 20070321, end: 20070321
  58. MAGNEVIST [Suspect]
     Route: 042
     Dates: start: 20070618, end: 20070618
  59. MAGNEVIST [Suspect]
     Route: 042
     Dates: start: 20071114, end: 20071114
  60. OMNISCAN [Suspect]
     Indication: TRANSIENT ISCHAEMIC ATTACK
  61. ACETAMINOPHEN [Concomitant]
  62. PHENERGAN [Concomitant]
  63. PERCOCET [Concomitant]
  64. ANCEF [Concomitant]

REACTIONS (24)
  - MOBILITY DECREASED [None]
  - ERYTHEMA [None]
  - JOINT STIFFNESS [None]
  - GAIT DISTURBANCE [None]
  - PAIN [None]
  - JOINT CONTRACTURE [None]
  - ANXIETY [None]
  - SKIN HYPERTROPHY [None]
  - OEDEMA PERIPHERAL [None]
  - SKIN DISORDER [None]
  - DYSPNOEA [None]
  - MORPHOEA [None]
  - SKIN TIGHTNESS [None]
  - NEPHROGENIC SYSTEMIC FIBROSIS [None]
  - ARTHROPATHY [None]
  - CARDIAC DISORDER [None]
  - SKIN FIBROSIS [None]
  - SKIN INDURATION [None]
  - RESPIRATORY DISORDER [None]
  - SKIN DISCOLOURATION [None]
  - SENSORY LOSS [None]
  - JOINT RANGE OF MOTION DECREASED [None]
  - SKIN LESION [None]
  - RENAL CELL CARCINOMA [None]
